FAERS Safety Report 20697724 (Version 2)
Quarter: 2022Q2

REPORT INFORMATION
  Report Type: Report from Study
  Country: BR (occurrence: BR)
  Receive Date: 20220411
  Receipt Date: 20220413
  Transmission Date: 20220720
  Serious: Yes (Other)
  Sender: FDA-Public Use
  Company Number: BR-ABBVIE-22K-020-4347656-00

PATIENT
  Age: 53 Year
  Sex: Female

DRUGS (3)
  1. RINVOQ [Suspect]
     Active Substance: UPADACITINIB
     Indication: Rheumatoid arthritis
     Route: 048
     Dates: start: 20210604
  2. PREDNISONE [Concomitant]
     Active Substance: PREDNISONE
     Indication: Rheumatoid arthritis
  3. DICLOFENAC SODIUM [Concomitant]
     Active Substance: DICLOFENAC SODIUM
     Indication: Rheumatoid arthritis

REACTIONS (11)
  - Sciatica [Recovering/Resolving]
  - Gait inability [Unknown]
  - Depression [Recovering/Resolving]
  - Nervous system disorder [Unknown]
  - Crying [Unknown]
  - Fibromyalgia [Unknown]
  - Hypersensitivity [Not Recovered/Not Resolved]
  - Malaise [Unknown]
  - Knee arthroplasty [Unknown]
  - Herpes zoster [Unknown]
  - Nausea [Unknown]

NARRATIVE: CASE EVENT DATE: 20210801
